FAERS Safety Report 16966251 (Version 2)
Quarter: 2019Q4

REPORT INFORMATION
  Report Type: Spontaneous
  Country: FR (occurrence: FR)
  Receive Date: 20191028
  Receipt Date: 20191125
  Transmission Date: 20200122
  Serious: Yes (Hospitalization, Disabling, Other)
  Sender: FDA-Public Use
  Company Number: FR-SA-2019SA294319

PATIENT
  Age: 84 Year
  Sex: Male
  Weight: 69 kg

DRUGS (17)
  1. ONDANSETRON [Suspect]
     Active Substance: ONDANSETRON
     Dosage: 8 MG, QCY
     Route: 042
     Dates: start: 20190917, end: 20190917
  2. METHYLPREDNISOLONE. [Suspect]
     Active Substance: METHYLPREDNISOLONE
     Indication: PREMEDICATION
     Dosage: 70 MG, QCY
     Route: 041
     Dates: start: 20190716, end: 20190716
  3. METHYLPREDNISOLONE. [Suspect]
     Active Substance: METHYLPREDNISOLONE
     Dosage: 70 MG, QCY
     Route: 041
     Dates: start: 20190917, end: 20190917
  4. RAMIPRIL. [Suspect]
     Active Substance: RAMIPRIL
     Indication: HYPERTENSION
     Dosage: 2 MG, QD
     Route: 048
     Dates: start: 2016, end: 20191004
  5. DOCETAXEL. [Suspect]
     Active Substance: DOCETAXEL
     Dosage: 87 MG, QCY
     Route: 041
     Dates: start: 20180327, end: 20180327
  6. JEVTANA [Suspect]
     Active Substance: CABAZITAXEL
     Indication: PROSTATE CANCER
     Dosage: 43.75 UNK, QCY
     Route: 041
     Dates: start: 20190716, end: 20190716
  7. DOCETAXEL. [Suspect]
     Active Substance: DOCETAXEL
     Indication: PROSTATE CANCER
     Dosage: UNK UNK, UNK
     Route: 065
     Dates: start: 201803, end: 201907
  8. FIRMAGON [Suspect]
     Active Substance: DEGARELIX ACETATE
     Indication: PROSTATE CANCER
     Dosage: 1 DF, Q4W
     Route: 058
     Dates: start: 20181008
  9. DOCETAXEL. [Suspect]
     Active Substance: DOCETAXEL
     Dosage: 87 MG, QCY
     Route: 041
     Dates: start: 20181210, end: 20181210
  10. BISOPROLOL HEMIFUMARATE [Suspect]
     Active Substance: BISOPROLOL FUMARATE
     Indication: HYPERTENSION
     Dosage: 1 DF, QD
     Route: 048
     Dates: start: 201705, end: 201910
  11. ONDANSETRON [Suspect]
     Active Substance: ONDANSETRON
     Indication: PREMEDICATION
     Dosage: 8 MG, QCY
     Route: 042
     Dates: start: 20190716, end: 20190716
  12. RANITIDINE HYDROCHLORIDE. [Suspect]
     Active Substance: RANITIDINE HYDROCHLORIDE
     Dosage: 50 MG, QCY
     Route: 041
     Dates: start: 20190917, end: 20190917
  13. KARDEGIC [Suspect]
     Active Substance: ASPIRIN DL-LYSINE
     Indication: PRODUCT USED FOR UNKNOWN INDICATION
     Dosage: 1 DF, QD
     Route: 048
     Dates: start: 201704, end: 20190921
  14. DEXCHLORPHENIRAMINE MALEATE. [Suspect]
     Active Substance: DEXCHLORPHENIRAMINE MALEATE
     Dosage: 5 MG, QCY
     Route: 042
     Dates: start: 20190917, end: 20190917
  15. RANITIDINE HYDROCHLORIDE. [Suspect]
     Active Substance: RANITIDINE HYDROCHLORIDE
     Indication: PREMEDICATION
     Dosage: 50 MG, QCY
     Route: 041
     Dates: start: 20190716, end: 20190716
  16. DEXCHLORPHENIRAMINE MALEATE. [Suspect]
     Active Substance: DEXCHLORPHENIRAMINE MALEATE
     Indication: PREMEDICATION
     Dosage: 5 MG, QCY
     Route: 042
     Dates: start: 20190716, end: 20190716
  17. JEVTANA [Suspect]
     Active Substance: CABAZITAXEL
     Dosage: 43.75 UNK, QCY
     Route: 041
     Dates: start: 20190917, end: 20190917

REACTIONS (5)
  - Visual field defect [Not Recovered/Not Resolved]
  - Vision blurred [Not Recovered/Not Resolved]
  - Retinal detachment [Recovered/Resolved with Sequelae]
  - Visual impairment [Not Recovered/Not Resolved]
  - Necrotising retinitis [Not Recovered/Not Resolved]

NARRATIVE: CASE EVENT DATE: 2018
